FAERS Safety Report 5497572-5 (Version None)
Quarter: 2007Q4

REPORT INFORMATION
  Report Type: 
  Country: None (occurrence: None)
  Receive Date: 20071025
  Receipt Date: 20061211
  Transmission Date: 20080405
  Serious: No
  Sender: FDA-Public Use
  Company Number: A0631134A

PATIENT
  Age: 83 Year
  Sex: Female

DRUGS (6)
  1. ADVAIR DISKUS 100/50 [Suspect]
     Indication: CHRONIC OBSTRUCTIVE PULMONARY DISEASE
     Dosage: 1PUFF TWICE PER DAY
     Route: 055
     Dates: start: 20061120
  2. SPIRIVA [Concomitant]
  3. NEXIUM [Concomitant]
  4. WARFARIN SODIUM [Concomitant]
  5. DILTIAZEM [Concomitant]
  6. UNKNOWN MEDICATION [Concomitant]

REACTIONS (2)
  - CANDIDIASIS [None]
  - PHARYNGOLARYNGEAL PAIN [None]
